FAERS Safety Report 15960314 (Version 1)
Quarter: 2019Q1

REPORT INFORMATION
  Report Type: Spontaneous
  Country: US (occurrence: US)
  Receive Date: 20190214
  Receipt Date: 20190214
  Transmission Date: 20190417
  Serious: No
  Sender: FDA-Public Use
  Company Number: US-ROCHE-2077334

PATIENT
  Sex: Male
  Weight: 99.88 kg

DRUGS (6)
  1. ERIVEDGE [Suspect]
     Active Substance: VISMODEGIB
     Indication: BASAL CELL CARCINOMA
     Dosage: DAILY
     Route: 048
     Dates: start: 20171228
  2. CARVEDILOL. [Concomitant]
     Active Substance: CARVEDILOL
     Dosage: UNKNOWN
     Route: 048
     Dates: start: 20171228
  3. GLIPIZIDE. [Concomitant]
     Active Substance: GLIPIZIDE
     Dosage: UNKNOWN
     Route: 048
     Dates: start: 20171228
  4. AMLODIPINE [Concomitant]
     Active Substance: AMLODIPINE BESYLATE
     Dosage: UNKNOWN
     Route: 065
     Dates: start: 20171228
  5. CRESTOR [Concomitant]
     Active Substance: ROSUVASTATIN CALCIUM
     Dosage: UNKNOWN
     Route: 048
     Dates: start: 20171228
  6. METFORMIN HYDROCHLORIDE. [Concomitant]
     Active Substance: METFORMIN HYDROCHLORIDE
     Dosage: UNKNOWN
     Route: 048
     Dates: start: 20171228

REACTIONS (1)
  - Abdominal discomfort [Not Recovered/Not Resolved]
